FAERS Safety Report 7774753-9 (Version None)
Quarter: 2011Q3

REPORT INFORMATION
  Report Type: 
  Country: None (occurrence: None)
  Receive Date: 20110923
  Receipt Date: 20110912
  Transmission Date: 20111222
  Serious: Yes (Death)
  Sender: FDA-Public Use
  Company Number: US-ACTELION-A-NJ2011-53948

PATIENT

DRUGS (3)
  1. VENTAVIS [Suspect]
     Indication: PULMONARY ARTERIAL HYPERTENSION
     Dosage: 5 ?G, 6 TO 9 TIMES DAILY
     Route: 055
     Dates: start: 20100310, end: 20100426
  2. ADCIRCA [Concomitant]
  3. TYVASO [Concomitant]

REACTIONS (1)
  - DEATH [None]
